FAERS Safety Report 8315494-9 (Version None)
Quarter: 2012Q2

REPORT INFORMATION
  Report Type: 
  Country: None (occurrence: None)
  Receive Date: 20120426
  Receipt Date: 20120419
  Transmission Date: 20120825
  Serious: Yes (Other)
  Sender: FDA-Public Use
  Company Number: CHPA2012BR005294

PATIENT
  Sex: Female
  Weight: 71 kg

DRUGS (14)
  1. METFORMIN HCL [Concomitant]
     Indication: DIABETES MELLITUS
     Dosage: 500 MG, BID
     Route: 048
  2. AZITHROMYCIN DIHYDRATE [Concomitant]
     Indication: SINUSITIS
     Dosage: UNK, UNK
  3. METFORMIN HCL [Concomitant]
     Dosage: 850 MG, BID
     Route: 048
  4. DIAMICRON [Concomitant]
     Indication: DIABETES MELLITUS
     Dosage: 60 MG, BID
     Route: 048
     Dates: start: 20110101
  5. GALVUS MET [Concomitant]
     Dosage: 50/1000MG, BID
     Route: 048
  6. GLUCOSAMINE [Concomitant]
     Indication: PROPHYLAXIS
     Dosage: UNK DF, QD
  7. BISOLVON [Concomitant]
     Indication: PRODUCTIVE COUGH
     Dosage: UNK, UNK
  8. COLECALCIFEROL [Concomitant]
     Indication: PROPHYLAXIS
  9. DEXTROMETHORPHAN HYDROBROMIDE [Suspect]
     Indication: COUGH
     Dosage: UNK, UNK
     Route: 048
  10. TAMIRAM [Concomitant]
     Indication: SINUSITIS
     Dosage: UNK, UNK
  11. DIAMICRON [Concomitant]
     Dosage: 60 MG, BID
     Route: 048
  12. AMARYL [Concomitant]
     Dosage: 6 MG, QD
     Route: 048
  13. ALLEGRA-D 12 HOUR [Concomitant]
     Indication: SINUSITIS
     Dosage: UNK DF, Q12H
  14. TOLTERODINE TARTRATE [Concomitant]
     Indication: URINARY INCONTINENCE
     Dosage: 4 MG, QD

REACTIONS (5)
  - DIABETES MELLITUS [None]
  - VARICOSE VEIN [None]
  - BLOOD GLUCOSE FLUCTUATION [None]
  - BLOOD GLUCOSE INCREASED [None]
  - URINARY INCONTINENCE [None]
